FAERS Safety Report 7618670-3 (Version None)
Quarter: 2011Q3

REPORT INFORMATION
  Report Type: 
  Country: None (occurrence: None)
  Receive Date: 20110718
  Receipt Date: 20110711
  Transmission Date: 20111222
  Serious: Yes (Other)
  Sender: FDA-Public Use
  Company Number: ES-B.I. PHARMACEUTICALS,INC./RIDGEFIELD-2011-ES-00163ES

PATIENT
  Age: 70 Year
  Sex: Female

DRUGS (4)
  1. PRADAXA [Suspect]
     Indication: ATRIAL FIBRILLATION
     Dosage: 220 MG
     Route: 048
     Dates: start: 20110706, end: 20110709
  2. OMEOPRAZOL [Concomitant]
  3. ANTIDEPRESSANT [Concomitant]
  4. DIURETIC [Concomitant]

REACTIONS (1)
  - OESOPHAGEAL CANDIDIASIS [None]
